FAERS Safety Report 20082870 (Version 2)
Quarter: 2021Q4

REPORT INFORMATION
  Report Type: Spontaneous
  Country: FR (occurrence: FR)
  Receive Date: 20211117
  Receipt Date: 20211222
  Transmission Date: 20220303
  Serious: Yes (Hospitalization, Other)
  Sender: FDA-Public Use
  Company Number: FR-002147023-NVSC2021FR245218

PATIENT
  Age: 28 Year
  Sex: Male
  Weight: 77 kg

DRUGS (3)
  1. CYTARABINE [Suspect]
     Active Substance: CYTARABINE
     Indication: Chemotherapy
     Dosage: 40 MG
     Route: 037
     Dates: start: 20210727, end: 20210727
  2. PREDNISONE [Suspect]
     Active Substance: PREDNISONE
     Indication: Chemotherapy
     Dosage: 40 MG
     Route: 037
     Dates: start: 20210722, end: 20210727
  3. NILOTINIB [Concomitant]
     Active Substance: NILOTINIB
     Dosage: UNK
     Route: 048

REACTIONS (6)
  - Post lumbar puncture syndrome [Recovered/Resolved with Sequelae]
  - Escherichia infection [Recovered/Resolved]
  - Thrombocytopenia [Unknown]
  - Pyrexia [Unknown]
  - Hyperthermia [Unknown]
  - Sinus disorder [Unknown]

NARRATIVE: CASE EVENT DATE: 20210802
